FAERS Safety Report 19894431 (Version 2)
Quarter: 2022Q1

REPORT INFORMATION
  Report Type: Spontaneous
  Country: DE (occurrence: DE)
  Receive Date: 20210929
  Receipt Date: 20220202
  Transmission Date: 20220423
  Serious: Yes (Other)
  Sender: FDA-Public Use
  Company Number: None

PATIENT
  Age: 46 Year
  Sex: Male
  Weight: 93 kg

DRUGS (2)
  1. OMEPRAZOLE [Suspect]
     Active Substance: OMEPRAZOLE
     Indication: Gastritis
     Dosage: 40 DF, QD (DAILY DOSE: 40 DF DOSAGE FORM EVERY DAYS 2 SEPARATED DOSES)
     Route: 048
     Dates: start: 20210119, end: 20210308
  2. OMEPRAZOLE [Suspect]
     Active Substance: OMEPRAZOLE
     Dosage: 20 MG, BID (20 MG / 1 DOSAGE FORM)
     Route: 048
     Dates: start: 20210119, end: 20210308

REACTIONS (4)
  - Erectile dysfunction [Not Recovered/Not Resolved]
  - Carotid arteriosclerosis [Unknown]
  - Nasopharyngitis [Unknown]
  - Inappropriate schedule of product administration [Unknown]

NARRATIVE: CASE EVENT DATE: 20210123
